FAERS Safety Report 25610729 (Version 3)
Quarter: 2025Q3

REPORT INFORMATION
  Report Type: Spontaneous
  Country: US (occurrence: US)
  Receive Date: 20250728
  Receipt Date: 20250916
  Transmission Date: 20251021
  Serious: No
  Sender: SANOFI AVENTIS
  Company Number: US-SA-2025SA212126

PATIENT
  Sex: Female
  Weight: 90.91 kg

DRUGS (12)
  1. DUPIXENT [Suspect]
     Active Substance: DUPILUMAB
     Indication: Asthma
     Dosage: 300 MG, QOW
     Route: 058
  2. DUPIXENT [Suspect]
     Active Substance: DUPILUMAB
     Indication: Dermatitis atopic
  3. DUPIXENT [Suspect]
     Active Substance: DUPILUMAB
     Indication: Asthma
     Dosage: 300 MG, QOW
     Route: 058
  4. VITAMIN D [Concomitant]
     Active Substance: VITAMIN D NOS
  5. MAGNESIUM [Concomitant]
     Active Substance: MAGNESIUM
  6. CALCIUM [Concomitant]
     Active Substance: CALCIUM
  7. METHOCARBAMOL [Concomitant]
     Active Substance: METHOCARBAMOL
  8. LEXAPRO [Concomitant]
     Active Substance: ESCITALOPRAM OXALATE
  9. LUTEIN [Concomitant]
     Active Substance: LUTEIN
  10. EYE HEALTH [Concomitant]
     Active Substance: AMINO ACIDS\BARLEY MALT
  11. EYE HEALTH EXTRA STRENGTH LUTEIN [Concomitant]
  12. VITAMIN D [Concomitant]
     Active Substance: VITAMIN D NOS

REACTIONS (6)
  - Contusion [Unknown]
  - Injection site nodule [Unknown]
  - Injection site pain [Unknown]
  - Hypersensitivity [Unknown]
  - Asthma [Unknown]
  - Illness [Unknown]
